FAERS Safety Report 18683626 (Version 1)
Quarter: 2020Q4

REPORT INFORMATION
  Report Type: Spontaneous
  Country: JP (occurrence: JP)
  Receive Date: 20201230
  Receipt Date: 20201230
  Transmission Date: 20210114
  Serious: Yes (Hospitalization)
  Sender: FDA-Public Use
  Company Number: JP-JNJFOC-20201253344

PATIENT
  Age: 79 Year
  Sex: Female

DRUGS (1)
  1. DUROTEP [Suspect]
     Active Substance: FENTANYL
     Indication: PRODUCT USED FOR UNKNOWN INDICATION
     Dosage: FENTANYL (MATRIX PATCH) 37.5MCG/HR
     Route: 062

REACTIONS (2)
  - Hospitalisation [Unknown]
  - Cutaneous symptom [Unknown]
